FAERS Safety Report 16996948 (Version 3)
Quarter: 2020Q1

REPORT INFORMATION
  Report Type: Spontaneous
  Country: US (occurrence: US)
  Receive Date: 20191106
  Receipt Date: 20200118
  Transmission Date: 20200409
  Serious: Yes (Other)
  Sender: FDA-Public Use
  Company Number: US-ROCHE-2453543

PATIENT
  Sex: Male
  Weight: 74.46 kg

DRUGS (4)
  1. LUCENTIS [Suspect]
     Active Substance: RANIBIZUMAB
     Indication: MACULAR DEGENERATION
     Route: 050
  2. PREDNISONE. [Concomitant]
     Active Substance: PREDNISONE
     Indication: EYE INFECTION
     Dosage: LEFT EYE DOSE NOT KNOWN ;ONGOING: YES
     Route: 047
  3. ROCKLATAN [Concomitant]
     Active Substance: LATANOPROST\NETARSUDIL MESYLATE
  4. DORZOLAMIDE [Concomitant]
     Active Substance: DORZOLAMIDE
     Dosage: MEDICATION TAKEN IN RIGHT EYE, DOSE NOT KNOWN ;ONGOING: YES
     Route: 047

REACTIONS (4)
  - Product contamination [Unknown]
  - Blindness unilateral [Not Recovered/Not Resolved]
  - Hypoacusis [Not Recovered/Not Resolved]
  - Product quality issue [Unknown]
